FAERS Safety Report 26059362 (Version 1)
Quarter: 2025Q4

REPORT INFORMATION
  Report Type: Spontaneous
  Country: US (occurrence: None)
  Receive Date: 20251118
  Receipt Date: 20251118
  Transmission Date: 20260119
  Serious: Yes (Life-Threatening, Hospitalization)
  Sender: ISTITUTO BICHIMICO ITALIANO GIOVANNI LORENZINI (IBIGEN)
  Company Number: US-MLMSERVICE-20251024-PI687288-00263-1

PATIENT
  Age: 74 Year
  Sex: Female

DRUGS (9)
  1. PIPERACILLIN AND TAZOBACTAM [Suspect]
     Active Substance: PIPERACILLIN SODIUM\TAZOBACTAM SODIUM
  2. URSODIOL [Suspect]
     Active Substance: URSODIOL
  3. INSULIN GLARGINE [Concomitant]
     Active Substance: INSULIN GLARGINE
  4. INSULIN LISPRO [Concomitant]
     Active Substance: INSULIN LISPRO
  5. SITAGLIPTIN [Concomitant]
     Active Substance: SITAGLIPTIN
  6. ATORVASTATIN [Concomitant]
     Active Substance: ATORVASTATIN
  7. ASPIRIN [Concomitant]
     Active Substance: ASPIRIN
  8. APIXABAN [Concomitant]
     Active Substance: APIXABAN
  9. CALCIUM ACETATE [Concomitant]
     Active Substance: CALCIUM ACETATE

REACTIONS (2)
  - Acute kidney injury [Recovering/Resolving]
  - Tubulointerstitial nephritis [Recovering/Resolving]

NARRATIVE: CASE EVENT DATE: 20250101
